FAERS Safety Report 14180982 (Version 1)
Quarter: 2017Q4

REPORT INFORMATION
  Report Type: Spontaneous
  Country: US (occurrence: None)
  Receive Date: 20171110
  Receipt Date: 20171110
  Transmission Date: 20180321
  Serious: Yes (Other)
  Sender: FDA-Public Use
  Company Number: None

PATIENT
  Age: 61 Year
  Sex: Male

DRUGS (7)
  1. ZOFRAN [Concomitant]
     Active Substance: ONDANSETRON HYDROCHLORIDE
  2. MORPHINE [Concomitant]
     Active Substance: MORPHINE
  3. ATIVAN [Concomitant]
     Active Substance: LORAZEPAM
  4. LONSURF [Suspect]
     Active Substance: TIPIRACIL HYDROCHLORIDE\TRIFLURIDINE
     Indication: RECTAL CANCER
     Route: 048
     Dates: start: 20170607
  5. NEURONTIN [Concomitant]
     Active Substance: GABAPENTIN
  6. LISINOPRIL. [Concomitant]
     Active Substance: LISINOPRIL
  7. LONSURF [Suspect]
     Active Substance: TIPIRACIL HYDROCHLORIDE\TRIFLURIDINE
     Indication: RECTAL CANCER
     Route: 048
     Dates: start: 20170607

REACTIONS (2)
  - Stoma site haemorrhage [None]
  - Diarrhoea [None]

NARRATIVE: CASE EVENT DATE: 20171107
